FAERS Safety Report 15514486 (Version 1)
Quarter: 2018Q4

REPORT INFORMATION
  Report Type: Spontaneous
  Country: US (occurrence: US)
  Receive Date: 20181016
  Receipt Date: 20181016
  Transmission Date: 20190205
  Serious: No
  Sender: FDA-Public Use
  Company Number: US-AMGEN-USASP2018117913

PATIENT
  Age: 63 Year
  Sex: Female
  Weight: 59.41 kg

DRUGS (1)
  1. NEULASTA [Suspect]
     Active Substance: PEGFILGRASTIM
     Indication: NEUTROPENIA
     Dosage: 6 MG, Q2WK
     Route: 065
     Dates: start: 20180726

REACTIONS (8)
  - Monocyte count increased [Unknown]
  - Platelet count decreased [Unknown]
  - White blood cell count decreased [Unknown]
  - Product dose omission [Unknown]
  - Red cell distribution width increased [Unknown]
  - Mean cell volume decreased [Unknown]
  - Granulocyte count increased [Unknown]
  - Lymphocyte count decreased [Unknown]

NARRATIVE: CASE EVENT DATE: 2018
